FAERS Safety Report 4779411-0 (Version None)
Quarter: 2005Q3

REPORT INFORMATION
  Report Type: 
  Country: None (occurrence: None)
  Receive Date: 20050914
  Receipt Date: 20050112
  Transmission Date: 20060218
  Serious: Yes (Hospitalization)
  Sender: FDA-Public Use
  Company Number: 163-20785-04120027

PATIENT
  Age: 69 Year
  Sex: Male
  Weight: 78.0187 kg

DRUGS (7)
  1. THALOMID [Suspect]
     Indication: MALIGNANT MELANOMA
     Dosage: 250 MG, DAILY, ORAL
     Route: 048
     Dates: start: 20041020
  2. GRANULOCYTE MACROPHAGE (GRANULOCYTE MACROPHAGE COLONY STIM FACTOR) (UN [Suspect]
     Indication: MALIGNANT MELANOMA
     Dosage: 250 MG, DAILY, SUBCUTANEOUS
     Route: 058
     Dates: start: 20041020
  3. ATENOLOL [Concomitant]
  4. LIPITOR [Concomitant]
  5. SYNTHROID [Concomitant]
  6. DIOVAN HCT (CO-DIOVAN) (UNKNOWN) [Concomitant]
  7. CELEBREX [Concomitant]

REACTIONS (3)
  - ABSCESS [None]
  - APPENDICITIS [None]
  - APPENDICITIS PERFORATED [None]
